FAERS Safety Report 20390469 (Version 1)
Quarter: 2022Q1

REPORT INFORMATION
  Report Type: Spontaneous
  Country: CA (occurrence: CA)
  Receive Date: 20220128
  Receipt Date: 20220128
  Transmission Date: 20220423
  Serious: Yes (Hospitalization)
  Sender: FDA-Public Use
  Company Number: None

PATIENT
  Age: 48 Year
  Sex: Female
  Weight: 52 kg

DRUGS (12)
  1. CISPLATIN [Suspect]
     Active Substance: CISPLATIN
     Indication: Lung adenocarcinoma
     Dosage: SOLUTION INTRAVENOUS
  2. PEMETREXED [Suspect]
     Active Substance: PEMETREXED
     Indication: Lung adenocarcinoma
     Dosage: POWDER FOR SOLUTION
  3. ASPIRIN [Concomitant]
     Active Substance: ASPIRIN
  4. DEXAMETHASONE [Concomitant]
     Active Substance: DEXAMETHASONE
  5. DULOXETINE [Concomitant]
     Active Substance: DULOXETINE
  6. EMEND [Concomitant]
     Active Substance: APREPITANT
  7. FOLIC ACID [Concomitant]
     Active Substance: FOLIC ACID
  8. NICOTINE [Concomitant]
     Active Substance: NICOTINE
     Dosage: TRANSDERMAL PATCH 21 MG
  9. ONDANSETRON [Concomitant]
     Active Substance: ONDANSETRON
  10. PANTOPRAZOLE [Concomitant]
     Active Substance: PANTOPRAZOLE
  11. VITAMIN B12 [Concomitant]
     Active Substance: CYANOCOBALAMIN
  12. VITAMIN D3 [Concomitant]
     Active Substance: CHOLECALCIFEROL

REACTIONS (1)
  - Febrile neutropenia [Recovered/Resolved]
